FAERS Safety Report 4613885-0 (Version None)
Quarter: 2005Q1

REPORT INFORMATION
  Report Type: 
  Country: None (occurrence: None)
  Receive Date: 20050316
  Receipt Date: 20050202
  Transmission Date: 20050727
  Serious: Yes (Hospitalization)
  Sender: FDA-Public Use
  Company Number: 6012939

PATIENT
  Age: 62 Year
  Sex: Female

DRUGS (18)
  1. LEVOTHYROXINE SODIUM [Suspect]
     Dosage: 125 MCG
  2. LITHIUM CARBONATE [Suspect]
     Dosage: SEE IMAGE
     Dates: start: 20030903, end: 20030922
  3. LITHIUM CARBONATE [Suspect]
     Dosage: SEE IMAGE
     Dates: start: 20030923, end: 20030929
  4. LITHIUM CARBONATE [Suspect]
     Dosage: SEE IMAGE
  5. LITHIUM CARBONATE [Suspect]
     Dosage: SEE IMAGE
     Dates: start: 20030930
  6. AMINEURIN (AMITRIPTYLINE HYDROCHLORIDE) [Suspect]
     Dosage: SEE IMAGE
     Dates: start: 20030712, end: 20030717
  7. AMINEURIN (AMITRIPTYLINE HYDROCHLORIDE) [Suspect]
     Dosage: SEE IMAGE
     Dates: start: 20030718, end: 20030916
  8. LORAZEPAM [Suspect]
     Dosage: SEE IMAGE
     Dates: start: 20030904, end: 20030907
  9. LORAZEPAM [Suspect]
     Dosage: SEE IMAGE
     Dates: start: 20030908, end: 20031005
  10. LORAZEPAM [Suspect]
     Dosage: SEE IMAGE
     Dates: start: 20031006
  11. TRUXAL (CHLORPORTHIXENE HYDROCHLORIDE) [Suspect]
     Dosage: SEE IMAGE
     Dates: start: 20030916, end: 20030925
  12. TRUXAL (CHLORPORTHIXENE HYDROCHLORIDE) [Suspect]
     Dosage: SEE IMAGE
     Dates: start: 20030926, end: 20030927
  13. TRUXAL (CHLORPORTHIXENE HYDROCHLORIDE) [Suspect]
     Dosage: SEE IMAGE
     Dates: start: 20030928
  14. ZYPREXA [Suspect]
     Dosage: SEE IMAGE
     Dates: start: 20030922, end: 20030922
  15. ZYPREXA [Suspect]
     Dosage: SEE IMAGE
     Dates: start: 20030923, end: 20030924
  16. ZYPREXA [Suspect]
     Dosage: SEE IMAGE
     Dates: start: 20030925, end: 20030925
  17. ZYPREXA [Suspect]
     Dosage: SEE IMAGE
     Dates: start: 20030926, end: 20030926
  18. LASIX [Suspect]
     Dosage: 20 MG
     Dates: start: 20030924

REACTIONS (2)
  - LIVER DISORDER [None]
  - TRANSAMINASES INCREASED [None]
